FAERS Safety Report 5290578-0 (Version None)
Quarter: 2007Q2

REPORT INFORMATION
  Report Type: 
  Country: None (occurrence: None)
  Receive Date: 20070405
  Receipt Date: 20070405
  Transmission Date: 20071010
  Serious: Yes (Hospitalization)
  Sender: FDA-Public Use
  Company Number: None

PATIENT
  Age: 54 Year
  Sex: Female
  Weight: 36.7414 kg

DRUGS (5)
  1. LEVETIRACETAM [Suspect]
     Indication: CONVULSION
     Dosage: 1500 MG PO BID
     Route: 048
  2. DIVALPROEX SODIUM [Suspect]
     Indication: CONVULSION
     Dosage: 750MG PO BID
     Route: 048
  3. ATIVAN [Concomitant]
  4. .. [Concomitant]
  5. .. [Concomitant]

REACTIONS (2)
  - CONVULSION [None]
  - MANIA [None]
